FAERS Safety Report 4471838-X (Version None)
Quarter: 2004Q4

REPORT INFORMATION
  Report Type: 
  Country: None (occurrence: None)
  Receive Date: 20041006
  Receipt Date: 20040921
  Transmission Date: 20050328
  Serious: Yes (Other)
  Sender: FDA-Public Use
  Company Number: 2004-0007527

PATIENT
  Age: 41 Year
  Sex: Female

DRUGS (5)
  1. TENOFOVIR DISOPROXYL FUMARATE (TENOFOVIR DISOPROXYL FUMARATE) (TABLET) [Suspect]
     Indication: HIV INFECTION
     Dosage: 300 MG, ORAL
     Route: 048
     Dates: start: 20020910
  2. FOSAAMPRENAVIR (FOSAAMPRENAVIR) [Concomitant]
  3. LAMIVUDINE (LAMIVUDINE) [Concomitant]
  4. RITONAVIR (RITONAVIR) [Concomitant]
  5. AMPRENAVIR (AMPRENAVIR) [Concomitant]

REACTIONS (2)
  - ABORTION MISSED [None]
  - DRUG EXPOSURE DURING PREGNANCY [None]
